FAERS Safety Report 9275930 (Version 1)
Quarter: 2013Q2

REPORT INFORMATION
  Report Type: Spontaneous
  Country: TW (occurrence: TW)
  Receive Date: 20130507
  Receipt Date: 20130507
  Transmission Date: 20140414
  Serious: Yes (Other)
  Sender: FDA-Public Use
  Company Number: TW-ABBOTT-12P-153-1014607-00

PATIENT
  Age: 46 Year
  Sex: Female
  Weight: 58 kg

DRUGS (12)
  1. HUMIRA [Suspect]
     Indication: RHEUMATOID ARTHRITIS
     Dosage: START/STOP ON SEVERAL OCCASIONS
     Route: 058
     Dates: start: 20110930, end: 20121026
  2. MTX [Concomitant]
     Indication: RHEUMATOID ARTHRITIS
     Route: 048
     Dates: start: 20090117
  3. MTX [Concomitant]
     Route: 048
     Dates: start: 20121123
  4. CELEBREX [Concomitant]
     Indication: RHEUMATOID ARTHRITIS
     Dates: start: 20090117
  5. CELEBREX [Concomitant]
     Route: 048
     Dates: start: 20121123
  6. PLAQUENIL [Concomitant]
     Indication: RHEUMATOID ARTHRITIS
     Route: 048
     Dates: start: 20090117
  7. PLAQUENIL [Concomitant]
     Route: 048
     Dates: start: 20121123
  8. SALAZOPYRIN [Concomitant]
     Indication: RHEUMATOID ARTHRITIS
     Route: 048
     Dates: start: 20090117
  9. SALAZOPYRIN [Concomitant]
     Route: 048
     Dates: start: 20121123
  10. DEPYRETIN [Concomitant]
     Indication: PRODUCT USED FOR UNKNOWN INDICATION
     Route: 048
  11. XANAX XR [Concomitant]
     Indication: PRODUCT USED FOR UNKNOWN INDICATION
     Dosage: ER AT BEDTIME
     Route: 048
  12. CEPHALEXIN [Concomitant]
     Indication: PRODUCT USED FOR UNKNOWN INDICATION
     Route: 048

REACTIONS (4)
  - Idiopathic pulmonary fibrosis [Unknown]
  - Thyroid cancer [Unknown]
  - Procedural pain [Unknown]
  - Cough [Unknown]
